FAERS Safety Report 4755245-8 (Version None)
Quarter: 2005Q3

REPORT INFORMATION
  Report Type: 
  Country: None (occurrence: None)
  Receive Date: 20050829
  Receipt Date: 20050414
  Transmission Date: 20060218
  Serious: Yes (Disabling, Other)
  Sender: FDA-Public Use
  Company Number: US-MERCK-0504USA02875

PATIENT
  Age: 48 Year
  Sex: Female
  Weight: 59 kg

DRUGS (7)
  1. VIOXX [Suspect]
     Indication: ARTHRALGIA
     Route: 048
     Dates: start: 20000117, end: 20041001
  2. VIOXX [Suspect]
     Route: 048
     Dates: start: 20000117, end: 20041001
  3. VIOXX [Suspect]
     Route: 048
     Dates: start: 20000117, end: 20041001
  4. SYNTHROID [Concomitant]
     Indication: HORMONE REPLACEMENT THERAPY
     Route: 048
     Dates: start: 19941001
  5. PAXIL [Concomitant]
     Route: 065
  6. ZYRTEC [Concomitant]
     Route: 065
  7. ESTROGENS (UNSPECIFIED) [Concomitant]
     Indication: HORMONE REPLACEMENT THERAPY
     Route: 065

REACTIONS (9)
  - ANXIETY [None]
  - ARRHYTHMIA [None]
  - ARTHRALGIA [None]
  - BLOOD CHOLESTEROL INCREASED [None]
  - DYSPNOEA [None]
  - HEART RATE IRREGULAR [None]
  - HYPERTENSION [None]
  - MYOCARDIAL INFARCTION [None]
  - TACHYCARDIA [None]
